FAERS Safety Report 24828235 (Version 1)
Quarter: 2025Q1

REPORT INFORMATION
  Report Type: Spontaneous
  Country: GB (occurrence: GB)
  Receive Date: 20250109
  Receipt Date: 20250109
  Transmission Date: 20250408
  Serious: Yes (Other)
  Sender: GLAXOSMITHKLINE
  Company Number: None

PATIENT

DRUGS (5)
  1. DUAC [Suspect]
     Active Substance: BENZOYL PEROXIDE\CLINDAMYCIN PHOSPHATE
     Indication: Product used for unknown indication
     Route: 065
     Dates: start: 20241231
  2. FLUTICASONE FUROATE [Concomitant]
     Active Substance: FLUTICASONE FUROATE
     Indication: Ill-defined disorder
     Dosage: 1 DF, QD ONE SPRAY TO EACH NOSTRIL EACH NIGHT
     Route: 045
     Dates: start: 20241217
  3. FEXOFENADINE [Concomitant]
     Active Substance: FEXOFENADINE HYDROCHLORIDE
     Indication: Ill-defined disorder
     Dosage: 1 DF, QD (TAKE ONE DAILY)
     Route: 065
     Dates: start: 20241231
  4. COAL TAR [Concomitant]
     Active Substance: COAL TAR
     Indication: Ill-defined disorder
     Route: 065
     Dates: start: 20200714
  5. BENZOYL PEROXIDE [Concomitant]
     Active Substance: BENZOYL PEROXIDE
     Indication: Ill-defined disorder
     Dosage: UNK UNK, QD APPLY ONCE DAILY IN THE EVENING
     Route: 065
     Dates: start: 20241217, end: 20241231

REACTIONS (2)
  - Swelling face [Recovering/Resolving]
  - Erythema [Unknown]

NARRATIVE: CASE EVENT DATE: 20241231
